FAERS Safety Report 6665311-8 (Version None)
Quarter: 2010Q1

REPORT INFORMATION
  Report Type: 
  Country: None (occurrence: None)
  Receive Date: 20100330
  Receipt Date: 20100316
  Transmission Date: 20100710
  Serious: Yes (Life-Threatening)
  Sender: FDA-Public Use
  Company Number: CN-JNJFOC-20090906236

PATIENT
  Sex: Female
  Weight: 49 kg

DRUGS (1)
  1. DECITABINE (DECITABINE) LYOPHILIZED POWDER [Suspect]
     Indication: MYELODYSPLASTIC SYNDROME
     Dosage: 22.2 MG, INTRAVENOUS
     Route: 042
     Dates: start: 20090825, end: 20090827

REACTIONS (9)
  - AGRANULOCYTOSIS [None]
  - COUGH [None]
  - HYPERPYREXIA [None]
  - ORAL INFECTION [None]
  - ORAL PAIN [None]
  - PNEUMONIA [None]
  - PYREXIA [None]
  - RHINALGIA [None]
  - RHINITIS [None]
